FAERS Safety Report 7046939-2 (Version None)
Quarter: 2010Q4

REPORT INFORMATION
  Report Type: 
  Country: None (occurrence: None)
  Receive Date: 20101015
  Receipt Date: 20101011
  Transmission Date: 20110411
  Serious: Yes (Hospitalization)
  Sender: FDA-Public Use
  Company Number: FR-BRISTOL-MYERS SQUIBB COMPANY-15331341

PATIENT
  Age: 68 Year
  Sex: Male

DRUGS (7)
  1. COUMADIN [Suspect]
     Dosage: 1 DF = 1.5 TAB; TREATED FOR YEARS
     Route: 048
     Dates: end: 20100707
  2. PLAVIX [Suspect]
     Dates: end: 20100707
  3. ASPEGIC 1000 [Concomitant]
  4. CORDARONE [Concomitant]
  5. RAMIPRIL [Concomitant]
  6. SERETIDE [Concomitant]
  7. GLICLAZIDE [Concomitant]

REACTIONS (6)
  - BRONCHOPULMONARY DISEASE [None]
  - HAEMATOMA [None]
  - HAEMOPTYSIS [None]
  - HYPOPROTHROMBINAEMIA [None]
  - INTERNATIONAL NORMALISED RATIO INCREASED [None]
  - PROSTATITIS [None]
